FAERS Safety Report 7118468-9 (Version None)
Quarter: 2010Q4

REPORT INFORMATION
  Report Type: 
  Country: None (occurrence: None)
  Receive Date: 20101123
  Receipt Date: 20101115
  Transmission Date: 20110411
  Serious: Yes (Death)
  Sender: FDA-Public Use
  Company Number: US-CELGENEUS-163-50794-10111910

PATIENT
  Sex: Female
  Weight: 55.842 kg

DRUGS (1)
  1. VIDAZA [Suspect]
     Route: 058
     Dates: start: 20100712

REACTIONS (2)
  - NEUTROPENIA [None]
  - SEPTIC SHOCK [None]
